FAERS Safety Report 20816687 (Version 3)
Quarter: 2022Q2

REPORT INFORMATION
  Report Type: Spontaneous
  Country: US (occurrence: US)
  Receive Date: 20220512
  Receipt Date: 20220526
  Transmission Date: 20220721
  Serious: No
  Sender: FDA-Public Use
  Company Number: US-UNITED THERAPEUTICS-UNT-2022-009901

PATIENT
  Age: 59 Year
  Sex: Female
  Weight: 92.971 kg

DRUGS (3)
  1. REMODULIN [Suspect]
     Active Substance: TREPROSTINIL
     Indication: Pulmonary arterial hypertension
     Dosage: UNK, CONTINUING
     Route: 058
     Dates: start: 20210503
  2. REMODULIN [Suspect]
     Active Substance: TREPROSTINIL
     Dosage: 0.090 ?G/KG, CONTINUING (PRE-FILLED WITH 3 ML PER CASSETTE, AT THE RATE OF 50 MCL PER HOUR)
     Route: 058
  3. REMODULIN [Suspect]
     Active Substance: TREPROSTINIL
     Dosage: UNK, CONTINUING
     Route: 058

REACTIONS (14)
  - Cough [Not Recovered/Not Resolved]
  - Dyspnoea exertional [Not Recovered/Not Resolved]
  - Diarrhoea [Not Recovered/Not Resolved]
  - Dizziness [Not Recovered/Not Resolved]
  - Flushing [Not Recovered/Not Resolved]
  - Fatigue [Not Recovered/Not Resolved]
  - Oedema peripheral [Not Recovered/Not Resolved]
  - Arthralgia [Not Recovered/Not Resolved]
  - Device wireless communication issue [Unknown]
  - Device leakage [Unknown]
  - Device infusion issue [Unknown]
  - Device use issue [Unknown]
  - Device issue [Unknown]
  - Infusion site pain [Unknown]

NARRATIVE: CASE EVENT DATE: 20220401
